FAERS Safety Report 4707831-9 (Version None)
Quarter: 2005Q3

REPORT INFORMATION
  Report Type: 
  Country: None (occurrence: None)
  Receive Date: 20050705
  Receipt Date: 20050705
  Transmission Date: 20060218
  Serious: Yes (Hospitalization)
  Sender: FDA-Public Use
  Company Number: None

PATIENT
  Sex: Female
  Weight: 50.3493 kg

DRUGS (1)
  1. GATIFLOXACIN [Suspect]
     Indication: OTITIS MEDIA
     Dosage: 400 MG  DAILY   ORAL
     Route: 048
     Dates: start: 20050128, end: 20050130

REACTIONS (7)
  - CONFUSIONAL STATE [None]
  - ELECTROCARDIOGRAM QT PROLONGED [None]
  - HALLUCINATION [None]
  - INCORRECT DOSE ADMINISTERED [None]
  - NAUSEA [None]
  - RENAL FAILURE ACUTE [None]
  - VOMITING [None]
